FAERS Safety Report 5758117-5 (Version None)
Quarter: 2008Q2

REPORT INFORMATION
  Report Type: 
  Country: None (occurrence: None)
  Receive Date: 20080603
  Receipt Date: 20080603
  Transmission Date: 20081010
  Serious: Yes (Hospitalization)
  Sender: FDA-Public Use
  Company Number: None

PATIENT
  Age: 53 Year
  Sex: Female
  Weight: 46.7205 kg

DRUGS (3)
  1. LAPATINIB  250MG  GLAXO SMITH KLEIN [Suspect]
     Indication: BREAST CANCER
     Dosage: 1000MG  ONCE A  DAY PO
     Route: 048
     Dates: start: 20080314, end: 20080530
  2. METFORMIN HCL [Concomitant]
  3. NORCO [Concomitant]

REACTIONS (9)
  - ABDOMINAL PAIN UPPER [None]
  - BILIARY TRACT DISORDER [None]
  - CHEST PAIN [None]
  - DECREASED APPETITE [None]
  - DEHYDRATION [None]
  - DIARRHOEA [None]
  - NEUROPATHY PERIPHERAL [None]
  - PYREXIA [None]
  - TACHYCARDIA [None]
